FAERS Safety Report 9297106 (Version 1)
Quarter: 2013Q2

REPORT INFORMATION
  Report Type: Spontaneous
  Country: JP (occurrence: JP)
  Receive Date: 20130520
  Receipt Date: 20130520
  Transmission Date: 20140414
  Serious: Yes (Other)
  Sender: FDA-Public Use
  Company Number: JP-AMGEN-JPNSP2012072697

PATIENT
  Age: 72 Year
  Sex: Female
  Weight: 46 kg

DRUGS (9)
  1. GRAN [Suspect]
     Indication: DIFFUSE LARGE B-CELL LYMPHOMA
     Dosage: 75 MUG, QD
     Route: 058
     Dates: start: 20121010, end: 20121010
  2. CAMPTO [Concomitant]
     Indication: DIFFUSE LARGE B-CELL LYMPHOMA
     Dosage: 35 MG, BID
     Route: 041
     Dates: start: 20121004, end: 20121005
  3. NOVANTRON [Concomitant]
     Indication: DIFFUSE LARGE B-CELL LYMPHOMA
     Dosage: 11 MG, QD
     Route: 042
     Dates: start: 20121006, end: 20121006
  4. PARIET [Concomitant]
     Dosage: 10 MG, QD
     Route: 048
     Dates: start: 20110111
  5. MAGMITT [Concomitant]
     Dosage: 330 MG, TID
     Route: 048
     Dates: start: 20110111
  6. PRAVASTAN [Concomitant]
     Dosage: 10 MG, QD
     Route: 048
     Dates: start: 20110111
  7. BIOFERMIN                          /01617201/ [Concomitant]
     Dosage: 1 G, QD
     Route: 048
     Dates: start: 20110111
  8. FLUCONAZOLE [Concomitant]
     Indication: DIFFUSE LARGE B-CELL LYMPHOMA
     Dosage: 100 MG, QD
     Route: 048
     Dates: start: 20110111
  9. BAKTAR [Concomitant]
     Dosage: UNK, QD
     Route: 048
     Dates: start: 20110111

REACTIONS (2)
  - Chest pain [Recovered/Resolved]
  - Back pain [Recovered/Resolved]
